FAERS Safety Report 7462483-2 (Version None)
Quarter: 2011Q2

REPORT INFORMATION
  Report Type: 
  Country: None (occurrence: None)
  Receive Date: 20110506
  Receipt Date: 20110429
  Transmission Date: 20111010
  Serious: Yes (Hospitalization)
  Sender: FDA-Public Use
  Company Number: US-SANOFI-AVENTIS-2010SA073771

PATIENT
  Age: 76 Year
  Sex: Female

DRUGS (13)
  1. TRACLEER [Suspect]
     Route: 048
     Dates: start: 20100921, end: 20110214
  2. TOPROL-XL [Suspect]
     Dates: end: 20100101
  3. TRACLEER [Suspect]
     Indication: PULMONARY ARTERIAL HYPERTENSION
     Route: 048
     Dates: start: 20100913, end: 20100920
  4. VALIUM [Concomitant]
  5. HYDROXYZINE [Concomitant]
  6. ALBUTEROL [Concomitant]
  7. TRACLEER [Suspect]
     Route: 048
     Dates: start: 20100820, end: 20100912
  8. WARFARIN [Concomitant]
  9. FERROUS SULFATE TAB [Concomitant]
  10. COLACE [Concomitant]
  11. LASIX [Concomitant]
  12. KLOR-CON [Concomitant]
  13. PLAVIX [Suspect]
     Route: 065
     Dates: start: 20100624

REACTIONS (4)
  - HAEMOGLOBIN DECREASED [None]
  - HYPOTENSION [None]
  - PRURITUS [None]
  - DIZZINESS [None]
